FAERS Safety Report 9537890 (Version 3)
Quarter: 2013Q4

REPORT INFORMATION
  Report Type: Spontaneous
  Country: US (occurrence: US)
  Receive Date: 20130919
  Receipt Date: 20131010
  Transmission Date: 20140711
  Serious: Yes (Other)
  Sender: FDA-Public Use
  Company Number: US-PFIZER INC-2013264355

PATIENT
  Age: 54 Year
  Sex: Female

DRUGS (3)
  1. REVATIO [Suspect]
     Dosage: UNK
  2. LETAIRIS [Suspect]
     Indication: PULMONARY ARTERIAL HYPERTENSION
     Dosage: 5 MG, 1X/DAY
     Dates: start: 20090119
  3. COUMADINE [Concomitant]
     Dosage: UNK

REACTIONS (2)
  - Syncope [Unknown]
  - Nasal congestion [Unknown]
